FAERS Safety Report 6718822-0 (Version None)
Quarter: 2010Q2

REPORT INFORMATION
  Report Type: 
  Country: None (occurrence: None)
  Receive Date: 20100511
  Receipt Date: 20100429
  Transmission Date: 20101027
  Serious: No
  Sender: FDA-Public Use
  Company Number: US-BIOGENIDEC-2010BI014846

PATIENT
  Sex: Male

DRUGS (1)
  1. TYSABRI [Suspect]
     Indication: MULTIPLE SCLEROSIS

REACTIONS (5)
  - BALANCE DISORDER [None]
  - CHILLS [None]
  - FATIGUE [None]
  - MEMORY IMPAIRMENT [None]
  - VISION BLURRED [None]
